FAERS Safety Report 23262484 (Version 3)
Quarter: 2024Q4

REPORT INFORMATION
  Report Type: Spontaneous
  Country: US (occurrence: US)
  Receive Date: 20231205
  Receipt Date: 20241202
  Transmission Date: 20250115
  Serious: No
  Sender: PFIZER
  Company Number: US-PFIZER INC-202300419136

PATIENT
  Age: 56 Year
  Sex: Female

DRUGS (5)
  1. XELJANZ [Suspect]
     Active Substance: TOFACITINIB CITRATE
     Dosage: TAKE 1 TABLET BY MOUTH TWICE A DAY
     Route: 048
     Dates: start: 20231101
  2. METHOTREXATE [Concomitant]
     Active Substance: METHOTREXATE
     Dosage: UNK
  3. BENZONATATE [Concomitant]
     Active Substance: BENZONATATE
     Dosage: UNK
  4. SERTRALINE HYDROCHLORIDE [Concomitant]
     Active Substance: SERTRALINE HYDROCHLORIDE
     Dosage: UNK
  5. CETIRIZINE HCL [Concomitant]
     Active Substance: CETIRIZINE HYDROCHLORIDE

REACTIONS (9)
  - Condition aggravated [Recovered/Resolved]
  - Dizziness [Unknown]
  - Paranasal sinus discomfort [Unknown]
  - Headache [Unknown]
  - Pyrexia [Recovered/Resolved]
  - Cough [Unknown]
  - COVID-19 [Recovered/Resolved]
  - Alopecia [Unknown]
  - Inappropriate schedule of product administration [Unknown]

NARRATIVE: CASE EVENT DATE: 20230101
